FAERS Safety Report 25608790 (Version 1)
Quarter: 2025Q3

REPORT INFORMATION
  Report Type: Other
  Country: GB (occurrence: GB)
  Receive Date: 20250726
  Receipt Date: 20250726
  Transmission Date: 20251021
  Serious: Yes (Other)
  Sender: ZYDUS PHARM
  Company Number: None

PATIENT

DRUGS (4)
  1. APIXABAN [Suspect]
     Active Substance: APIXABAN
     Indication: Hypertension
     Route: 065
     Dates: end: 20250630
  2. APIXABAN [Suspect]
     Active Substance: APIXABAN
     Route: 065
     Dates: end: 20250630
  3. AMLODIPINE [Concomitant]
     Active Substance: AMLODIPINE BESYLATE
     Indication: Hypertension
     Route: 065
  4. INDAPAMIDE [Concomitant]
     Active Substance: INDAPAMIDE
     Indication: Hypertension
     Route: 065

REACTIONS (1)
  - Joint swelling [Not Recovered/Not Resolved]

NARRATIVE: CASE EVENT DATE: 20250210
